FAERS Safety Report 8783458 (Version 1)
Quarter: 2012Q4

REPORT INFORMATION
  Report Type: 
  Country: US (occurrence: US)
  Receive Date: 20120913
  Receipt Date: 20120913
  Transmission Date: 20130627
  Serious: No
  Sender: FDA-Public Use
  Company Number: US-VERTEX PHARMACEUTICAL INC.-AE-2012-009024

PATIENT
  Age: 56 Year
  Sex: Male
  Weight: 77.27 kg

DRUGS (8)
  1. INCIVEK [Suspect]
     Indication: HEPATITIS C
     Route: 048
     Dates: start: 20120611
  2. RIBAVIRIN [Concomitant]
     Indication: HEPATITIS C
     Route: 048
     Dates: start: 20120611
  3. PEGASYS [Concomitant]
     Indication: HEPATITIS C
     Route: 058
     Dates: start: 20120611
  4. NEURONTIN [Concomitant]
     Indication: NEUROPATHY PERIPHERAL
  5. TRAMADOL [Concomitant]
     Indication: PAIN
  6. METFORMIN [Concomitant]
     Indication: DIABETES MELLITUS
  7. HYDROCHLOROTHIAZIDE [Concomitant]
     Indication: HYPERTENSION
  8. CEFADROXIL [Concomitant]
     Indication: STAPHYLOCOCCAL INFECTION
     Route: 048

REACTIONS (1)
  - Anorectal discomfort [Not Recovered/Not Resolved]
